FAERS Safety Report 6099827-2 (Version None)
Quarter: 2009Q1

REPORT INFORMATION
  Report Type: 
  Country: None (occurrence: None)
  Receive Date: 20090303
  Receipt Date: 20090220
  Transmission Date: 20090719
  Serious: Yes (Hospitalization)
  Sender: FDA-Public Use
  Company Number: PHHY2009CH06435

PATIENT
  Age: 63 Year
  Sex: Female

DRUGS (8)
  1. RASILEZ [Suspect]
     Dosage: 150 MG/D
     Dates: start: 20080601, end: 20081203
  2. AMIODARONE HCL [Suspect]
     Dosage: 150 MG/D
  3. CARVEDILOL [Suspect]
     Dosage: 6.25 MG
     Dates: start: 20080601, end: 20081203
  4. ALDOZONE [Suspect]
     Indication: CARDIAC FAILURE CONGESTIVE
     Dosage: 1 DOSAGE FORM/DAY
     Dates: start: 20050101, end: 20081203
  5. ARIMIDEX [Suspect]
     Indication: BREAST NEOPLASM
     Dosage: 1 MG/D
     Dates: end: 20081203
  6. HYDROXYUREA [Suspect]
     Indication: MYELOPROLIFERATIVE DISORDER
     Dosage: 500 MG/D
     Dates: start: 19980101, end: 20081203
  7. SINTROM [Concomitant]
     Indication: MYELOPROLIFERATIVE DISORDER
     Dosage: UNK
     Dates: start: 19980101
  8. ANTRA [Concomitant]
     Dosage: 20 MG/D
     Dates: start: 19980101

REACTIONS (9)
  - ATRIOVENTRICULAR BLOCK COMPLETE [None]
  - CARDIAC PACEMAKER INSERTION [None]
  - CONDUCTION DISORDER [None]
  - HEPATIC EMBOLISATION [None]
  - HEPATIC FIBROSIS [None]
  - HEPATIC NECROSIS [None]
  - HEPATITIS CHOLESTATIC [None]
  - ISCHAEMIA [None]
  - JAUNDICE [None]
